FAERS Safety Report 18021432 (Version 2)
Quarter: 2020Q3

REPORT INFORMATION
  Report Type: Spontaneous
  Country: NL (occurrence: NL)
  Receive Date: 20200714
  Receipt Date: 20200811
  Transmission Date: 20201103
  Serious: Yes (Hospitalization)
  Sender: FDA-Public Use
  Company Number: NL-COLLEGIUM PHARMACEUTICAL, INC.-NL-2020COL000498

PATIENT
  Age: 40 Year
  Sex: Male

DRUGS (3)
  1. TEMAZEPAM. [Concomitant]
     Active Substance: TEMAZEPAM
     Indication: PRODUCT USED FOR UNKNOWN INDICATION
     Dosage: UNK, PRN
  2. AMITRIPTYLINE [Concomitant]
     Active Substance: AMITRIPTYLINE
     Indication: BACK PAIN
     Dosage: UNK (LOW DOSE)
  3. TAPENTADOL EXTENDED RELEASE [Suspect]
     Active Substance: TAPENTADOL
     Indication: BACK PAIN
     Dosage: 450 MG, QD
     Route: 048
     Dates: start: 2018

REACTIONS (1)
  - Psychotic disorder [Recovering/Resolving]
